FAERS Safety Report 10878995 (Version 1)
Quarter: 2015Q1

REPORT INFORMATION
  Report Type: Spontaneous
  Country: US (occurrence: None)
  Receive Date: 20150224
  Receipt Date: 20150224
  Transmission Date: 20150721
  Serious: Yes (Hospitalization)
  Sender: FDA-Public Use
  Company Number: None

PATIENT
  Age: 71 Year
  Sex: Female

DRUGS (2)
  1. EXEMESTANE 25 MG [Suspect]
     Active Substance: EXEMESTANE
     Route: 048
     Dates: start: 20140916, end: 201502
  2. AFINITOR [Suspect]
     Active Substance: EVEROLIMUS
     Indication: BREAST CANCER
     Route: 048
     Dates: start: 20141022, end: 201502

REACTIONS (2)
  - Inflammation [None]
  - Pneumonia [None]

NARRATIVE: CASE EVENT DATE: 201502
